FAERS Safety Report 5504062-X (Version None)
Quarter: 2007Q4

REPORT INFORMATION
  Report Type: 
  Country: None (occurrence: None)
  Receive Date: 20071030
  Receipt Date: 20071019
  Transmission Date: 20080405
  Serious: Yes (Other)
  Sender: FDA-Public Use
  Company Number: 2007001789

PATIENT
  Age: 72 Year
  Sex: Male
  Weight: 107.1 kg

DRUGS (10)
  1. ERLOTINIB (TABLET) [Suspect]
     Indication: NON-SMALL CELL LUNG CANCER
     Dosage: (150 MG,QD), ORAL
     Route: 048
     Dates: start: 20070813
  2. ERLOTINIB (TABLET) [Suspect]
     Indication: NON-SMALL CELL LUNG CANCER
     Dosage: (150 MG,QD), ORAL
     Route: 048
     Dates: start: 20070920
  3. ERLOTINIB (TABLET) [Suspect]
  4. BEVACIZUMAB (INJECTION FOR INFUSION) [Suspect]
     Indication: NON-SMALL CELL LUNG CANCER
     Dosage: (1635 MG, Q3W), INTRAVENOUS
     Route: 042
     Dates: start: 20070813
  5. BEVACIZUMAB (INJECTION FOR INFUSION) [Suspect]
  6. BEVACIZUMAB (INJECTION FOR INFUSION) [Suspect]
  7. MULTIVITAMIN (MULTIVITAMIN) [Concomitant]
  8. ATENOLOL [Concomitant]
  9. AMICAR [Concomitant]
  10. CALCIUM (CALCIUM) [Concomitant]

REACTIONS (2)
  - FIBRIN D DIMER INCREASED [None]
  - PULMONARY EMBOLISM [None]
